FAERS Safety Report 4524360-6 (Version None)
Quarter: 2004Q4

REPORT INFORMATION
  Report Type: 
  Country: None (occurrence: None)
  Receive Date: 20041119
  Receipt Date: 20040811
  Transmission Date: 20050328
  Serious: No
  Sender: FDA-Public Use
  Company Number: 208404

PATIENT
  Sex: Male

DRUGS (1)
  1. RAPTIVA [Suspect]
     Indication: PSORIASIS
     Dosage: 1 ML, 1/WK, SUBCUTANEOUS
     Route: 058
     Dates: start: 20040617

REACTIONS (3)
  - AMNESIA [None]
  - HALLUCINATION [None]
  - MOTOR DYSFUNCTION [None]
